FAERS Safety Report 11920107 (Version 1)
Quarter: 2016Q1

REPORT INFORMATION
  Report Type: Spontaneous
  Country: None (occurrence: None)
  Receive Date: 20160114
  Receipt Date: 20160114
  Transmission Date: 20160526
  Serious: Yes (Disabling, Other)
  Sender: FDA-Public Use
  Company Number: None

PATIENT
  Age: 52 Year
  Sex: Female
  Weight: 90.2 kg

DRUGS (13)
  1. FUROSEMIDE. [Concomitant]
     Active Substance: FUROSEMIDE
  2. NOVOLOG [Concomitant]
     Active Substance: INSULIN ASPART
  3. RIBAVIRIN 200 MG TABLET AUROBINDO [Suspect]
     Active Substance: RIBAVIRIN
     Indication: HEPATITIS C
     Route: 048
     Dates: start: 20151219, end: 20160107
  4. TACROLIMUS. [Concomitant]
     Active Substance: TACROLIMUS
  5. ACYCLOVIR. [Concomitant]
     Active Substance: ACYCLOVIR
  6. DEXILANT [Concomitant]
     Active Substance: DEXLANSOPRAZOLE
  7. SULFAMETHOXAZOLE/TRIMETHOPRIM [Concomitant]
     Active Substance: SULFAMETHOXAZOLE\TRIMETHOPRIM
  8. LANTUS [Concomitant]
     Active Substance: INSULIN GLARGINE
  9. AMLODIPINE [Concomitant]
     Active Substance: AMLODIPINE BESYLATE
  10. MYCOPHENOLATE MOFETIL. [Concomitant]
     Active Substance: MYCOPHENOLATE MOFETIL
  11. LEVOTHYROXINE. [Concomitant]
     Active Substance: LEVOTHYROXINE
  12. LISINOPRIL. [Concomitant]
     Active Substance: LISINOPRIL
  13. PREDNISONE. [Concomitant]
     Active Substance: PREDNISONE

REACTIONS (1)
  - Retinal vein occlusion [None]

NARRATIVE: CASE EVENT DATE: 20151230
